FAERS Safety Report 7047916-8 (Version None)
Quarter: 2010Q4

REPORT INFORMATION
  Report Type: 
  Country: None (occurrence: None)
  Receive Date: 20101014
  Receipt Date: 20101014
  Transmission Date: 20110411
  Serious: Yes (Hospitalization)
  Sender: FDA-Public Use
  Company Number: None

PATIENT
  Sex: Male
  Weight: 122 kg

DRUGS (7)
  1. CYCLOPHOSPHAMIDE [Suspect]
     Dosage: 2360 MG
  2. CYTARABINE [Suspect]
     Dosage: 1400 MG
  3. DOXORUBICIN HYDROCHLORIDE [Suspect]
     Dosage: 171 MG
  4. METHOTREXATE [Suspect]
     Dosage: 13.8 MG
  5. PEG-L ASPARAGINASE (K-H) [Suspect]
     Dosage: 11400 MG
  6. THIOGUANINE [Suspect]
     Dosage: 1960 MG
  7. VINCRISTINE SULFATE [Suspect]
     Dosage: 8 MG

REACTIONS (4)
  - FEBRILE NEUTROPENIA [None]
  - HEADACHE [None]
  - MUSCULOSKELETAL STIFFNESS [None]
  - PHOTOPHOBIA [None]
